FAERS Safety Report 7628804-2 (Version None)
Quarter: 2011Q3

REPORT INFORMATION
  Report Type: 
  Country: None (occurrence: None)
  Receive Date: 20110722
  Receipt Date: 20110323
  Transmission Date: 20111222
  Serious: No
  Sender: FDA-Public Use
  Company Number: US-BAYER-2011-025898

PATIENT

DRUGS (2)
  1. BETASERON [Suspect]
  2. ALCOHOL SWABS [Concomitant]
     Dosage: UNK

REACTIONS (1)
  - INJECTION SITE RASH [None]
